FAERS Safety Report 21768812 (Version 1)
Quarter: 2022Q4

REPORT INFORMATION
  Report Type: Spontaneous
  Country: US (occurrence: US)
  Receive Date: 20221222
  Receipt Date: 20221222
  Transmission Date: 20230112
  Serious: No
  Sender: FDA-Public Use
  Company Number: US-PURDUE PHARMA-USA-2022-0295884

PATIENT
  Age: 62 Year
  Sex: Female

DRUGS (3)
  1. HYDROMORPHONE HYDROCHLORIDE [Interacting]
     Active Substance: HYDROMORPHONE HYDROCHLORIDE
     Indication: Product used for unknown indication
     Dosage: UNK
     Route: 065
  2. MORPHINE SULFATE [Suspect]
     Active Substance: MORPHINE SULFATE
     Indication: Product used for unknown indication
     Dosage: 30 MILLIGRAM
     Route: 048
  3. LENVIMA [Interacting]
     Active Substance: LENVATINIB
     Indication: Renal cancer
     Dosage: 20 MILLIGRAM
     Route: 048
     Dates: start: 20220629

REACTIONS (3)
  - Vomiting [Recovered/Resolved]
  - Medication error [Unknown]
  - Drug interaction [Unknown]
